FAERS Safety Report 7458530-4 (Version None)
Quarter: 2011Q2

REPORT INFORMATION
  Report Type: 
  Country: None (occurrence: None)
  Receive Date: 20110504
  Receipt Date: 20110428
  Transmission Date: 20111010
  Serious: Yes (Other)
  Sender: FDA-Public Use
  Company Number: PHHY2010GB89846

PATIENT
  Age: 55 Year
  Sex: Female

DRUGS (5)
  1. WARFARIN [Interacting]
     Dosage: 45 MG/WEEK
  2. MICONAZOLE [Interacting]
     Indication: FUNGAL INFECTION
     Dosage: 100 MG, UNK
     Route: 067
  3. WARFARIN [Interacting]
     Dosage: 32.5 MG/WEEK
  4. WARFARIN [Suspect]
     Indication: ILL-DEFINED DISORDER
     Dosage: 45 MG/WEEK
  5. MICONAZOLE [Interacting]
     Indication: ILL-DEFINED DISORDER
     Dosage: 200 MG, QD
     Route: 067

REACTIONS (6)
  - CONTUSION [None]
  - DRUG INTERACTION [None]
  - VAGINAL INFECTION [None]
  - ECCHYMOSIS [None]
  - INTERNATIONAL NORMALISED RATIO INCREASED [None]
  - FUNGAL INFECTION [None]
